FAERS Safety Report 18770980 (Version 1)
Quarter: 2021Q1

REPORT INFORMATION
  Report Type: Spontaneous
  Country: PT (occurrence: PT)
  Receive Date: 20210122
  Receipt Date: 20210122
  Transmission Date: 20210419
  Serious: Yes (Other)
  Sender: FDA-Public Use
  Company Number: PT-ASTRAZENECA-2021A009966

PATIENT
  Age: 70 Year
  Sex: Female

DRUGS (6)
  1. SEDOXIL [Concomitant]
     Active Substance: MEXAZOLAM
  2. EZETIMIB [Concomitant]
     Active Substance: EZETIMIBE
  3. EBYMECT [Suspect]
     Active Substance: DAPAGLIFLOZIN PROPANEDIOL\METFORMIN HYDROCHLORIDE
     Indication: DIABETES MELLITUS
     Route: 048
     Dates: start: 202101, end: 202101
  4. BISOPROLOL [Concomitant]
     Active Substance: BISOPROLOL
  5. EUTIROX [Concomitant]
     Active Substance: LEVOTHYROXINE SODIUM
  6. FLIXOTAIDE DISKUS [Concomitant]

REACTIONS (3)
  - Blood pressure increased [Unknown]
  - Diarrhoea [Unknown]
  - Limb discomfort [Unknown]

NARRATIVE: CASE EVENT DATE: 202101
